FAERS Safety Report 9586214 (Version 2)
Quarter: 2013Q4

REPORT INFORMATION
  Report Type: Spontaneous
  Country: GB (occurrence: GB)
  Receive Date: 20131003
  Receipt Date: 20131112
  Transmission Date: 20140711
  Serious: Yes (Death, Hospitalization)
  Sender: FDA-Public Use
  Company Number: GB-JNJFOC-20131000533

PATIENT
  Age: 83 Year
  Sex: Male

DRUGS (4)
  1. XARELTO [Suspect]
     Indication: CEREBROVASCULAR ACCIDENT PROPHYLAXIS
     Route: 065
  2. ROSUVASTATIN [Concomitant]
     Route: 065
  3. ALENDRONIC ACID [Concomitant]
     Route: 065
  4. ADCAL D3 [Concomitant]
     Route: 065

REACTIONS (1)
  - Haemorrhage intracranial [Fatal]
